FAERS Safety Report 9548531 (Version 1)
Quarter: 2013Q3

REPORT INFORMATION
  Report Type: Spontaneous
  Country: US (occurrence: None)
  Receive Date: 20130923
  Receipt Date: 20130923
  Transmission Date: 20140515
  Serious: No
  Sender: FDA-Public Use
  Company Number: None

PATIENT
  Age: 25 Year
  Sex: Female
  Weight: 61.24 kg

DRUGS (1)
  1. PERCOCET [Suspect]
     Indication: JOINT DISLOCATION
     Dosage: 1 ONCE DAILY TAKEN BY MOUTH
     Dates: start: 20130615, end: 20130918

REACTIONS (4)
  - Somnolence [None]
  - Somnolence [None]
  - Product substitution issue [None]
  - Drug ineffective [None]
